FAERS Safety Report 9392988 (Version 1)
Quarter: 2013Q3

REPORT INFORMATION
  Report Type: Spontaneous
  Country: NL (occurrence: NL)
  Receive Date: 20130710
  Receipt Date: 20130710
  Transmission Date: 20140515
  Serious: Yes (Hospitalization)
  Sender: FDA-Public Use
  Company Number: NL-NOVOPROD-381970

PATIENT
  Age: 64 Year
  Sex: Male

DRUGS (1)
  1. VICTOZA [Suspect]
     Indication: TYPE 2 DIABETES MELLITUS
     Dosage: UNK
     Route: 058
     Dates: start: 201201, end: 20130423

REACTIONS (3)
  - Pancreatic carcinoma [Recovering/Resolving]
  - Gastrointestinal disorder [Recovered/Resolved]
  - Pancreatitis [Recovered/Resolved]
